FAERS Safety Report 24382949 (Version 1)
Quarter: 2024Q4

REPORT INFORMATION
  Report Type: Report from Study
  Country: US (occurrence: US)
  Receive Date: 20241001
  Receipt Date: 20241001
  Transmission Date: 20250115
  Serious: Yes (Hospitalization)
  Sender: JOHNSON AND JOHNSON
  Company Number: US-JNJFOC-20240840883

PATIENT
  Age: 70 Year
  Sex: Female

DRUGS (6)
  1. RIVAROXABAN [Suspect]
     Active Substance: RIVAROXABAN
     Indication: Atrial fibrillation
     Route: 048
  2. RIVAROXABAN [Suspect]
     Active Substance: RIVAROXABAN
     Indication: Cerebrovascular accident prophylaxis
  3. IRON [Concomitant]
     Active Substance: IRON
  4. CALCIUM\CHOLECALCIFEROL [Concomitant]
     Active Substance: CALCIUM\CHOLECALCIFEROL
  5. GLUCOSAMINE [Concomitant]
     Active Substance: GLUCOSAMINE
  6. CHONDROFLEX [CHONDROITIN SULFATE] [Concomitant]
     Indication: Arthropathy

REACTIONS (3)
  - Heart rate increased [Recovering/Resolving]
  - Physical disability [Unknown]
  - Motor dysfunction [Unknown]

NARRATIVE: CASE EVENT DATE: 20240814
